FAERS Safety Report 10351674 (Version 4)
Quarter: 2014Q3

REPORT INFORMATION
  Report Type: Report from Study
  Country: AU (occurrence: AU)
  Receive Date: 20140730
  Receipt Date: 20140915
  Transmission Date: 20150326
  Serious: Yes (Death, Hospitalization)
  Sender: FDA-Public Use
  Company Number: AU-EXELIXIS-XL18414004537

PATIENT
  Age: 73 Year
  Sex: Male
  Weight: 83 kg

DRUGS (13)
  1. XL184 [Suspect]
     Active Substance: CABOZANTINIB
     Indication: PROSTATE CANCER
     Dosage: 5 MG, BID
     Route: 048
     Dates: start: 20130722, end: 20140616
  2. OXYCONTIN [Concomitant]
     Active Substance: OXYCODONE HYDROCHLORIDE
  3. PANTOPRAZOLE [Concomitant]
     Active Substance: PANTOPRAZOLE SODIUM
  4. XL184 [Suspect]
     Active Substance: CABOZANTINIB
     Indication: PROSTATE CANCER
     Dosage: 60 MG, QD
     Route: 048
     Dates: start: 20130722
  5. XL184 [Suspect]
     Active Substance: CABOZANTINIB
     Dosage: 40 MG, QD
     Route: 048
     Dates: end: 20140616
  6. MIRTAZAPINE. [Concomitant]
     Active Substance: MIRTAZAPINE
  7. MACROGOL [Concomitant]
     Active Substance: POLYETHYLENE GLYCOLS
  8. DOCUSATE SODIUM. [Concomitant]
     Active Substance: DOCUSATE SODIUM
  9. CALCIUM CARBONATE. [Concomitant]
     Active Substance: CALCIUM CARBONATE
  10. PARACETAMOL OSTEO [Concomitant]
  11. POTASSIUM CHLORIDE. [Concomitant]
     Active Substance: POTASSIUM CHLORIDE
  12. ENDONE [Concomitant]
     Active Substance: OXYCODONE HYDROCHLORIDE
  13. CLEXANE [Concomitant]
     Active Substance: ENOXAPARIN SODIUM

REACTIONS (6)
  - Nocardia sepsis [Fatal]
  - Metastases to spine [None]
  - Refusal of treatment by patient [None]
  - Spinal cord compression [Recovering/Resolving]
  - Brain abscess [None]
  - Bacillus test positive [None]

NARRATIVE: CASE EVENT DATE: 20140617
